FAERS Safety Report 15131704 (Version 1)
Quarter: 2018Q4

REPORT INFORMATION
  Report Type: Spontaneous
  Country: US (occurrence: US)
  Receive Date: 20180711
  Receipt Date: 20180711
  Transmission Date: 20190204
  Serious: No
  Sender: FDA-Public Use
  Company Number: US-OPTINOSE US, INC.-US-2018OPT000088

PATIENT
  Age: 66 Year
  Sex: Male
  Weight: 81.63 kg

DRUGS (3)
  1. XHANCE [Suspect]
     Active Substance: FLUTICASONE PROPIONATE
     Indication: NASAL POLYPS
     Dosage: 186 ?G, QD (1 SPRAY EACH NOSTRIL ONCE DAILY)
     Route: 045
     Dates: start: 201805, end: 201806
  2. XHANCE [Suspect]
     Active Substance: FLUTICASONE PROPIONATE
     Dosage: UNK, QD (BLEW AT 25%, 1 SPRAY EACH NOSTRIL ONCE DAILY)
     Route: 045
     Dates: start: 201806, end: 201806
  3. ADVAIR HFA [Concomitant]
     Active Substance: FLUTICASONE PROPIONATE\SALMETEROL XINAFOATE
     Indication: ASTHMA
     Dosage: UNK

REACTIONS (6)
  - Drug intolerance [Recovered/Resolved]
  - Stress [Recovered/Resolved]
  - Wrong technique in product usage process [Unknown]
  - Performance status decreased [Recovered/Resolved]
  - Anxiety [Recovered/Resolved]
  - Feeling abnormal [Recovered/Resolved]

NARRATIVE: CASE EVENT DATE: 201805
